FAERS Safety Report 23314548 (Version 1)
Quarter: 2023Q4

REPORT INFORMATION
  Report Type: Spontaneous
  Country: US (occurrence: US)
  Receive Date: 20231219
  Receipt Date: 20231219
  Transmission Date: 20240110
  Serious: Yes (Hospitalization)
  Sender: FDA-Public Use
  Company Number: US-MYLANLABS-2023M1134874

PATIENT
  Age: 83 Year
  Sex: Male

DRUGS (4)
  1. VALPROIC ACID [Suspect]
     Active Substance: VALPROIC ACID
     Indication: Dementia
     Dosage: 500 MILLIGRAM Q8
     Route: 065
  2. VALPROIC ACID [Suspect]
     Active Substance: VALPROIC ACID
     Dosage: UNK, VALPROIC ACID WAS INCREASED 2?WEEKS PRIOR TO HOSPITALISATION?
     Route: 065
  3. RISPERIDONE [Concomitant]
     Active Substance: RISPERIDONE
     Indication: Dementia
     Dosage: 0.25 MILLIGRAM, Q12
     Route: 065
  4. BENZTROPINE [Concomitant]
     Active Substance: BENZTROPINE
     Indication: Dementia
     Dosage: UNK
     Route: 065

REACTIONS (8)
  - Encephalopathy [Recovering/Resolving]
  - Tremor [Recovering/Resolving]
  - Thrombocytopenia [Recovering/Resolving]
  - Off label use [Recovering/Resolving]
  - Hyperammonaemia [Recovering/Resolving]
  - Subdural haemorrhage [Unknown]
  - Fall [Unknown]
  - Toxicity to various agents [Recovering/Resolving]
